FAERS Safety Report 20998593 (Version 2)
Quarter: 2022Q3

REPORT INFORMATION
  Report Type: Report from Study
  Country: US (occurrence: US)
  Receive Date: 20220623
  Receipt Date: 20220714
  Transmission Date: 20221027
  Serious: Yes (Other)
  Sender: FDA-Public Use
  Company Number: US-NOVARTISTESTPH-NVSC2022US141931

PATIENT
  Age: 33 Year
  Sex: Male
  Weight: 101.86 kg

DRUGS (12)
  1. GILENYA [Suspect]
     Active Substance: FINGOLIMOD HYDROCHLORIDE
     Indication: Multiple sclerosis
     Dosage: 0.5 MG, QD
     Route: 048
     Dates: start: 20220619, end: 20220619
  2. SILDENAFIL CITRATE [Concomitant]
     Active Substance: SILDENAFIL CITRATE
     Indication: Product used for unknown indication
     Dosage: 20 MG, QW
     Route: 048
     Dates: start: 20220619
  3. TOPIRAMATE [Concomitant]
     Active Substance: TOPIRAMATE
     Indication: Product used for unknown indication
     Dosage: 1 DOSAGE FORM, BID, (FOR 30 DAYS)
     Route: 048
     Dates: start: 20220604
  4. TOPIRAMATE [Concomitant]
     Active Substance: TOPIRAMATE
     Dosage: 1 DOSAGE FORM, BID
     Route: 048
     Dates: start: 20220619
  5. BACLOFEN [Concomitant]
     Active Substance: BACLOFEN
     Indication: Product used for unknown indication
     Dosage: 5 MG, (INCREASED TO 10 MG TID AFTER 1 WEEK)
     Route: 048
     Dates: start: 20220604
  6. BACLOFEN [Concomitant]
     Active Substance: BACLOFEN
     Dosage: 1 DOSAGE FORM, TID
     Route: 048
     Dates: start: 20220619
  7. SODIUM CHLORIDE [Concomitant]
     Active Substance: SODIUM CHLORIDE
     Indication: Product used for unknown indication
     Dosage: 1 ML, QMO
     Route: 042
     Dates: end: 20220621
  8. SILDENAFIL [Concomitant]
     Active Substance: SILDENAFIL
     Indication: Pulmonary hypertension
     Dosage: UNK, (TAKE 5 TABLETS BY MOUTH 1 HOUR PRIOR TO INTERCOURSE)
     Route: 048
     Dates: start: 20220602
  9. SUMATRIPTAN [Concomitant]
     Active Substance: SUMATRIPTAN
     Indication: Product used for unknown indication
     Dosage: 1 DOSAGE FORM, QD, (FOR 30 DAYS)
     Route: 048
     Dates: start: 20220329
  10. TECFIDERA [Concomitant]
     Active Substance: DIMETHYL FUMARATE
     Indication: Product used for unknown indication
     Dosage: 1 DOSAGE FORM, QD, (120 MG (14)-240 MG (46))
     Route: 048
     Dates: start: 20220621
  11. GABAPENTIN [Concomitant]
     Active Substance: GABAPENTIN
     Indication: Product used for unknown indication
     Dosage: 300 MG, TID
     Route: 048
     Dates: start: 20180627
  12. OXYBUTYNIN CHLORIDE [Concomitant]
     Active Substance: OXYBUTYNIN CHLORIDE
     Indication: Product used for unknown indication
     Dosage: 1 DOSAGE FORM, QD (EXTENDED RELEASE 24 HOUR)
     Route: 048
     Dates: start: 20220527

REACTIONS (10)
  - Bradycardia [Recovered/Resolved]
  - Bradycardia [Recovered/Resolved]
  - Somnolence [Recovered/Resolved]
  - Chest pain [Unknown]
  - Atrioventricular block second degree [Unknown]
  - Asthenia [Unknown]
  - Dizziness [Unknown]
  - Somnolence [Recovered/Resolved]
  - Presyncope [Unknown]
  - Fatigue [Unknown]

NARRATIVE: CASE EVENT DATE: 20220619
